FAERS Safety Report 9173895 (Version 1)
Quarter: 2013Q1

REPORT INFORMATION
  Report Type: Spontaneous
  Country: GB (occurrence: GB)
  Receive Date: 20130320
  Receipt Date: 20130320
  Transmission Date: 20140127
  Serious: Yes (Hospitalization)
  Sender: FDA-Public Use
  Company Number: GB-009507513-1303GBR008525

PATIENT
  Age: 66 Year
  Sex: Female

DRUGS (9)
  1. DEXAMETHASONE [Suspect]
     Indication: PLASMA CELL MYELOMA
     Dosage: 20 MG, UNK
     Route: 048
     Dates: start: 20130114, end: 2013
  2. DOXORUBICIN [Suspect]
     Indication: PLASMA CELL MYELOMA
     Dosage: 16 MG, UNK
     Route: 065
     Dates: start: 20130114, end: 2013
  3. VELCADE [Suspect]
     Indication: PLASMA CELL MYELOMA
     Dosage: 1.3 MG, UNK
     Route: 042
     Dates: start: 20130114, end: 2013
  4. ADCAL (CALCIUM CARBONATE) [Concomitant]
     Dosage: UNK
     Dates: start: 20130204
  5. ALLOPURINOL [Concomitant]
     Dosage: UNK
     Dates: start: 20130204
  6. OMEPRAZOLE [Concomitant]
  7. SANDO-K [Concomitant]
  8. ENOXAPARIN SODIUM [Concomitant]
  9. ONDANSETRON [Concomitant]

REACTIONS (1)
  - Lower respiratory tract infection [Recovered/Resolved]
